FAERS Safety Report 7246508-5 (Version None)
Quarter: 2011Q1

REPORT INFORMATION
  Report Type: 
  Country: None (occurrence: None)
  Receive Date: 20110126
  Receipt Date: 20110113
  Transmission Date: 20110831
  Serious: Yes (Hospitalization)
  Sender: FDA-Public Use
  Company Number: US-MYLANLABS-2011S1001102

PATIENT
  Age: 79 Year
  Sex: Male

DRUGS (3)
  1. METRONIDAZOLE [Interacting]
     Indication: DIVERTICULITIS
     Route: 065
  2. GLIMEPIRIDE [Interacting]
     Route: 048
  3. CIPROFLOXACIN [Suspect]
     Indication: DIVERTICULITIS
     Route: 065

REACTIONS (3)
  - HYPOGLYCAEMIA [None]
  - DRUG INTERACTION [None]
  - HYPOTENSION [None]
